FAERS Safety Report 9896070 (Version 1)
Quarter: 2014Q1

REPORT INFORMATION
  Report Type: Spontaneous
  Country: US (occurrence: US)
  Receive Date: 20140213
  Receipt Date: 20140213
  Transmission Date: 20141002
  Serious: No
  Sender: FDA-Public Use
  Company Number: US-BRISTOL-MYERS SQUIBB COMPANY-19037704

PATIENT
  Age: 53 Year
  Sex: Female
  Weight: 83.9 kg

DRUGS (8)
  1. ABATACEPT SUBQ INJECTION 125MG/ML [Suspect]
     Dosage: 1 DF: 125MG/ML
     Route: 058
  2. HYDROCODONE + ACETAMINOPHEN [Concomitant]
     Dosage: 1DF=7.5-300-UNITS NOS
  3. CYMBALTA [Concomitant]
     Dosage: CAPS
  4. LEFLUNOMIDE [Concomitant]
     Dosage: TABS
  5. LISINOPRIL [Concomitant]
     Dosage: TABS
  6. PREDNISONE [Concomitant]
  7. HCTZ + TRIAMTERENE [Concomitant]
     Dosage: 1DF=25-37.5-UNITS NOS
  8. ATORVASTATIN [Concomitant]
     Dosage: TABS

REACTIONS (2)
  - Weight increased [Unknown]
  - Pain in extremity [Unknown]
